FAERS Safety Report 5190422-6 (Version None)
Quarter: 2006Q4

REPORT INFORMATION
  Report Type: 
  Country: None (occurrence: None)
  Receive Date: 20061222
  Receipt Date: 20061108
  Transmission Date: 20070319
  Serious: Yes (Hospitalization, Disabling)
  Sender: FDA-Public Use
  Company Number: PHMT2006CA02108

PATIENT
  Age: 52 Year
  Sex: Male

DRUGS (6)
  1. CLOZARIL [Suspect]
     Indication: SCHIZOPHRENIA
     Route: 048
     Dates: start: 19980430
  2. RISPERDAL [Concomitant]
     Dosage: 2 MG, QD
     Route: 048
  3. RANITIDINE [Concomitant]
  4. LIPITOR [Concomitant]
  5. ATENOLOL [Concomitant]
  6. PANTOLOC ^SOLVAY^ [Concomitant]

REACTIONS (3)
  - ABDOMINAL DISTENSION [None]
  - ADHESION [None]
  - GASTROINTESTINAL OBSTRUCTION [None]
